FAERS Safety Report 24172899 (Version 3)
Quarter: 2024Q4

REPORT INFORMATION
  Report Type: Spontaneous
  Country: PL (occurrence: PL)
  Receive Date: 20240805
  Receipt Date: 20241011
  Transmission Date: 20250114
  Serious: Yes (Other)
  Sender: MYLAN
  Company Number: PL-MYLANLABS-2024M1067845

PATIENT
  Age: 58 Year
  Sex: Male

DRUGS (2)
  1. ATORVASTATIN [Suspect]
     Active Substance: ATORVASTATIN
     Indication: Acute myocardial infarction
     Dosage: 40 MILLIGRAM, QD
     Route: 065
  2. ATORVASTATIN [Suspect]
     Active Substance: ATORVASTATIN
     Indication: Hypercholesterolaemia

REACTIONS (3)
  - Lipoprotein (a) increased [Recovering/Resolving]
  - Low density lipoprotein increased [Recovering/Resolving]
  - Drug ineffective [Unknown]
